FAERS Safety Report 5714828-9 (Version None)
Quarter: 2008Q2

REPORT INFORMATION
  Report Type: 
  Country: None (occurrence: None)
  Receive Date: 20080423
  Receipt Date: 20080418
  Transmission Date: 20081010
  Serious: Yes (Hospitalization)
  Sender: FDA-Public Use
  Company Number: US-BRISTOL-MYERS SQUIBB COMPANY-14140420

PATIENT
  Age: 54 Year
  Sex: Female
  Weight: 70 kg

DRUGS (1)
  1. DASATINIB [Suspect]
     Indication: CHONDROSARCOMA
     Dosage: INTERRUPTED ON 02-APR-2008 AND RESTARTED ON 11-APR-2008
     Route: 048
     Dates: start: 20080103

REACTIONS (3)
  - COLITIS ISCHAEMIC [None]
  - DEHYDRATION [None]
  - ENTERITIS [None]
